FAERS Safety Report 17288274 (Version 1)
Quarter: 2020Q1

REPORT INFORMATION
  Report Type: Spontaneous
  Country: US (occurrence: US)
  Receive Date: 20200120
  Receipt Date: 20200120
  Transmission Date: 20200409
  Serious: No
  Sender: FDA-Public Use
  Company Number: US-TEVA-2020-US-1167203

PATIENT
  Age: 25 Year
  Sex: Female

DRUGS (1)
  1. ATOMOXETINE TEVA [Suspect]
     Active Substance: ATOMOXETINE
     Route: 065

REACTIONS (3)
  - Product substitution issue [Unknown]
  - Malaise [Unknown]
  - Palpitations [Unknown]
